FAERS Safety Report 16586780 (Version 1)
Quarter: 2019Q3

REPORT INFORMATION
  Report Type: Spontaneous
  Country: DE (occurrence: DE)
  Receive Date: 20190717
  Receipt Date: 20190717
  Transmission Date: 20191004
  Serious: Yes (Hospitalization)
  Sender: FDA-Public Use
  Company Number: DE-TEVA-2019-DE-1077472

PATIENT
  Age: 68 Year
  Sex: Female
  Weight: 68 kg

DRUGS (15)
  1. MOVICOL [Concomitant]
     Active Substance: POLYETHYLENE GLYCOL 3350\POTASSIUM CHLORIDE\SODIUM BICARBONATE\SODIUM CHLORIDE
     Dosage: 1 BAG, IF NECESSARY, POWDER
     Route: 048
  2. METOPROLOL. [Concomitant]
     Active Substance: METOPROLOL
     Dosage: 23.75 MG, 1-0-1-0, TABLETS
     Route: 048
  3. HYDROCHLOROTHIAZID [Concomitant]
     Active Substance: HYDROCHLOROTHIAZIDE
     Dosage: 12.5 MG, 1-0-0-0, TABLETS
     Route: 048
  4. RAMIPRIL. [Concomitant]
     Active Substance: RAMIPRIL
     Dosage: 2.5 MG, 1-0-0-0, TABLETS
     Route: 048
  5. PANTOPRAZOL [Concomitant]
     Active Substance: PANTOPRAZOLE SODIUM
     Dosage: 40 MG, 1-0-0-0, TABLETS
     Route: 048
  6. ONDANSETRON [Concomitant]
     Active Substance: ONDANSETRON
     Dosage: 8 MG, 1-0-1-0, TABLETS
     Route: 048
  7. IRENAT [Concomitant]
     Active Substance: SODIUM PERCHLORATE
     Dosage: 300 MG / ML, 1-1-1-0 PER 20 ?, DROPS
     Route: 048
  8. MAGNESIUM [Concomitant]
     Active Substance: MAGNESIUM
     Dosage: 1 BAG, IF NECESSARY, POWDER
     Route: 048
  9. KALIUM [Concomitant]
     Active Substance: POTASSIUM CHLORIDE
     Dosage: BY VALUE, EFFERVESCENT TABLETS
     Route: 048
  10. DEXAMETHASON [Concomitant]
     Active Substance: DEXAMETHASONE
     Dosage: 8 MG, 1-0-0-0, TABLETS
     Route: 048
  11. LEVOTHYROXIN-NATRIUM [Concomitant]
     Active Substance: LEVOTHYROXINE SODIUM
     Dosage: 50 ?G, 1-0-0-0, TABLETS
     Route: 048
  12. LEDERFOLAT [Suspect]
     Active Substance: LEUCOVORIN CALCIUM
     Dosage: NK MG / KG BODY WEIGHT, ACCORDING TO THE SCHEDULE, MOST RECENTLY 19.12.2017, SOLUTION FOR INJECTION
     Route: 042
  13. CETUXIMAB. [Suspect]
     Active Substance: CETUXIMAB
     Dosage: NK MG / KG BODY WEIGHT, ACCORDING TO THE SCHEDULE, MOST RECENTLY 19.12.2017, SOLUTION FOR INJECTION
     Route: 042
  14. FLUOROURACIL. [Suspect]
     Active Substance: FLUOROURACIL
     Dosage: NK MG / KG BODY WEIGHT, ACCORDING TO THE SCHEDULE, MOST RECENTLY 19.12.2017, SOLUTION FOR INJECTION
     Route: 042
  15. IRINOTECAN [Suspect]
     Active Substance: IRINOTECAN
     Dosage: NK MG / KG BODY WEIGHT, ACCORDING TO THE SCHEDULE, MOST RECENTLY 19.12.2017, SOLUTION FOR INJECTION
     Route: 042

REACTIONS (3)
  - Pyrexia [Unknown]
  - General physical health deterioration [Unknown]
  - Arrhythmia [Unknown]
